FAERS Safety Report 6945341-9 (Version None)
Quarter: 2010Q3

REPORT INFORMATION
  Report Type: 
  Country: None (occurrence: None)
  Receive Date: 20100827
  Receipt Date: 20100818
  Transmission Date: 20110219
  Serious: Yes (Hospitalization)
  Sender: FDA-Public Use
  Company Number: US-ROCHE-691867

PATIENT
  Sex: Female

DRUGS (4)
  1. PEGINTERFERON ALFA-2A [Suspect]
     Indication: HEPATITIS C
     Dosage: FORM: PRE-FILLED SYRINGE (PFS)
     Route: 065
     Dates: start: 20091105, end: 20100216
  2. PEGINTERFERON ALFA-2A [Suspect]
     Route: 065
     Dates: start: 20100316, end: 20100805
  3. RIBAVIRIN [Suspect]
     Indication: HEPATITIS C
     Dosage: FORM: PILLS
     Route: 065
     Dates: start: 20091105, end: 20100216
  4. RIBAVIRIN [Suspect]
     Dosage: FORM: PILLS, MISSED 3 DAYS OF RIBAVIRIN DOSE
     Route: 065
     Dates: start: 20100316, end: 20100805

REACTIONS (6)
  - ANAEMIA [None]
  - FALL [None]
  - INFECTION [None]
  - MUSCULAR WEAKNESS [None]
  - SYNCOPE [None]
  - WHITE BLOOD CELL COUNT DECREASED [None]
